FAERS Safety Report 5923916-3 (Version None)
Quarter: 2008Q4

REPORT INFORMATION
  Report Type: 
  Country: None (occurrence: None)
  Receive Date: 20081020
  Receipt Date: 20081014
  Transmission Date: 20090506
  Serious: Yes (Hospitalization, Other)
  Sender: FDA-Public Use
  Company Number: US-ELI_LILLY_AND_COMPANY-US200810003574

PATIENT
  Sex: Female

DRUGS (2)
  1. HUMALOG [Suspect]
     Dosage: UNK, UNK
     Dates: start: 19960101
  2. HUMALOG [Suspect]
     Dosage: UNK, UNKNOWN

REACTIONS (12)
  - AORTIC ANEURYSM [None]
  - BLOOD GLUCOSE DECREASED [None]
  - BLOOD GLUCOSE INCREASED [None]
  - COUGH [None]
  - GASTROENTERITIS VIRAL [None]
  - HEART RATE IRREGULAR [None]
  - MALAISE [None]
  - PAIN IN EXTREMITY [None]
  - POOR PERIPHERAL CIRCULATION [None]
  - STENT-GRAFT MALFUNCTION [None]
  - VISION BLURRED [None]
  - VISUAL ACUITY REDUCED [None]
